FAERS Safety Report 24368132 (Version 6)
Quarter: 2024Q4

REPORT INFORMATION
  Report Type: Spontaneous
  Country: GT (occurrence: GT)
  Receive Date: 20240926
  Receipt Date: 20241205
  Transmission Date: 20250115
  Serious: No
  Sender: PFIZER
  Company Number: GT-PFIZER INC-PV202400121302

PATIENT
  Age: 10 Year
  Sex: Female

DRUGS (1)
  1. GENOTROPIN [Suspect]
     Active Substance: SOMATROPIN
     Dosage: 1.2 MG, DAILY

REACTIONS (4)
  - Device breakage [Unknown]
  - Wrong technique in device usage process [Unknown]
  - Incorrect dose administered [Unknown]
  - Device malfunction [Unknown]
